FAERS Safety Report 8180291-4 (Version None)
Quarter: 2012Q1

REPORT INFORMATION
  Report Type: 
  Country: None (occurrence: None)
  Receive Date: 20120215
  Receipt Date: 20120206
  Transmission Date: 20120608
  Serious: Yes (Hospitalization)
  Sender: FDA-Public Use
  Company Number: 2012031033

PATIENT
  Age: 21 Year
  Sex: Female

DRUGS (7)
  1. HIZENTRA [Suspect]
     Indication: DERMATOMYOSITIS
     Dosage: 25 MG/KG 1X/WEEK
     Route: 058
     Dates: start: 20110928
  2. PREDNISONE TAB [Concomitant]
  3. AZATHIOPRINE [Concomitant]
  4. PANTOPRAZOLE [Concomitant]
  5. RESTEX (MADOPAR /00349201/) [Concomitant]
  6. L-DOPA (LEVODOPA) [Concomitant]
  7. METHOTREXAT /00113801/ (METHOTREXATE) [Concomitant]

REACTIONS (3)
  - DERMATITIS ALLERGIC [None]
  - PRURITUS [None]
  - OFF LABEL USE [None]
